FAERS Safety Report 26023918 (Version 1)
Quarter: 2025Q4

REPORT INFORMATION
  Report Type: Spontaneous
  Country: EU (occurrence: EU)
  Receive Date: 20251111
  Receipt Date: 20251111
  Transmission Date: 20260118
  Serious: Yes (Other)
  Sender: BRISTOL-MYERS SQUIBB COMPANY
  Company Number: EU-BRISTOL-MYERS SQUIBB COMPANY-2025-150866

PATIENT
  Age: 80 Year
  Sex: Female

DRUGS (5)
  1. ELIQUIS [Suspect]
     Active Substance: APIXABAN
     Indication: Atrial fibrillation
  2. ELIQUIS [Suspect]
     Active Substance: APIXABAN
     Dates: start: 2024
  3. ELIQUIS [Suspect]
     Active Substance: APIXABAN
     Dosage: 1 X 2.5 MG AND 1 X 5MG ELIQUIS DAILY
     Dates: start: 202506
  4. ELIQUIS [Suspect]
     Active Substance: APIXABAN
  5. PANTOPRAZOLE [Concomitant]
     Active Substance: PANTOPRAZOLE
     Indication: Product used for unknown indication

REACTIONS (9)
  - Pancreatic carcinoma [Unknown]
  - Metastases to liver [Unknown]
  - Renal impairment [Unknown]
  - Anastomotic haemorrhage [Unknown]
  - Cerebrovascular accident [Unknown]
  - Embolic cerebral infarction [Unknown]
  - Hemiplegia [Unknown]
  - Acquired gene mutation [Unknown]
  - Off label use [Unknown]

NARRATIVE: CASE EVENT DATE: 20250601
